FAERS Safety Report 20362425 (Version 4)
Quarter: 2022Q1

REPORT INFORMATION
  Report Type: Report from Study
  Country: DE (occurrence: None)
  Receive Date: 20220121
  Receipt Date: 20220211
  Transmission Date: 20220423
  Serious: Yes (Hospitalization)
  Sender: FDA-Public Use
  Company Number: DE-ROCHE-3003626

PATIENT
  Age: 48 Year
  Sex: Female
  Weight: 70 kg

DRUGS (5)
  1. ATEZOLIZUMAB [Suspect]
     Active Substance: ATEZOLIZUMAB
     Indication: HER2 positive breast cancer
     Dosage: LAST DOSE BEFORE SAE 27/DEC/2021
     Route: 042
     Dates: start: 20210413, end: 20211227
  2. TRASTUZUMAB [Suspect]
     Active Substance: TRASTUZUMAB
     Indication: HER2 positive breast cancer
     Dosage: ON DAY 1 AT THE DOSE OF 8 MG/KG LOADING DOSE I.V., THEN 6 MG/KG ?LAST DOSE BEFORE SAE 27/DEC/2021 (4
     Route: 042
     Dates: start: 20210413, end: 20211227
  3. PERTUZUMAB [Suspect]
     Active Substance: PERTUZUMAB
     Indication: HER2 positive breast cancer
     Dosage: ON DAY 1 AT THE DOSE OF 840 MG LOADING DOSE I.V., THEN 420 MG ?LAST DOSE BEFORE SAE 27/DEC/2021 (420
     Route: 042
     Dates: start: 20210413, end: 20211227
  4. CARBOPLATIN [Suspect]
     Active Substance: CARBOPLATIN
     Indication: HER2 positive breast cancer
     Dosage: AT AUC 2 I.V. ON DAY 1 AND DAY 8 EVERY 3 WEEKS?LAST DOSE BEFORE SAE 03/AUG/2021
     Route: 042
     Dates: start: 20210413, end: 20210803
  5. PACLITAXEL [Suspect]
     Active Substance: PACLITAXEL
     Indication: HER2 positive breast cancer
     Dosage: ON DAY 1 AND DAY 8 EVERY 3 WEEKS?LAST DOSE BEFORE SAE 03/AUG/2021 (168 MG)
     Route: 042
     Dates: start: 20210413

REACTIONS (1)
  - Psoriasis [Not Recovered/Not Resolved]

NARRATIVE: CASE EVENT DATE: 20211020
